FAERS Safety Report 9826295 (Version 1)
Quarter: 2014Q1

REPORT INFORMATION
  Report Type: Spontaneous
  Country: US (occurrence: US)
  Receive Date: 20140117
  Receipt Date: 20140117
  Transmission Date: 20141002
  Serious: No
  Sender: FDA-Public Use
  Company Number: US-BIOGENIDEC-2014BI000976

PATIENT
  Sex: Female

DRUGS (20)
  1. TECFIDERA [Suspect]
     Indication: MULTIPLE SCLEROSIS
     Route: 048
     Dates: start: 201308
  2. RESTASIS [Concomitant]
  3. ESTROVEN EXTRA STRENGTH [Concomitant]
  4. OSTEO BI-FLEX ADVANCED DO [Concomitant]
  5. LEXAPRO [Concomitant]
  6. CO Q 10 [Concomitant]
  7. VITAMIN K [Concomitant]
  8. VITAMIN D [Concomitant]
  9. DHEA [Concomitant]
  10. BIOTIN 5000 [Concomitant]
  11. VENASTAT [Concomitant]
  12. FISH OIL [Concomitant]
  13. B12-ACTIVE [Concomitant]
  14. NEXIUM [Concomitant]
  15. IRON [Concomitant]
  16. CALCIUM 500 [Concomitant]
  17. MAGNESIUM ELEMENTAL [Concomitant]
  18. FOLIC ACID [Concomitant]
  19. CLONAZEPAM [Concomitant]
  20. BACLOFEN [Concomitant]

REACTIONS (1)
  - Balance disorder [Unknown]
